FAERS Safety Report 6103696-1 (Version None)
Quarter: 2009Q1

REPORT INFORMATION
  Report Type: 
  Country: None (occurrence: None)
  Receive Date: 20090305
  Receipt Date: 20090226
  Transmission Date: 20090719
  Serious: Yes (Other)
  Sender: FDA-Public Use
  Company Number: BR-AVENTIS-200911764GDDC

PATIENT
  Age: 50 Year
  Sex: Female
  Weight: 63 kg

DRUGS (9)
  1. LANTUS [Suspect]
     Route: 058
     Dates: start: 20080801
  2. NOVORAPID [Concomitant]
     Dosage: DOSE: 2 IU IF GLYCEMIA{100; 3 IU IF GLYCEMIA 100-200; 4 IU IF GLYCEMIA 200-300; 5 IU IF GLYCEMIA
     Route: 058
     Dates: start: 20080801
  3. UNKNOWN DRUG [Concomitant]
     Indication: RENAL TRANSPLANT
     Dosage: DOSE QUANTITY: 2; FREQUENCY: AFTER MEALS
     Route: 048
  4. CELLCEPT [Concomitant]
     Indication: RENAL TRANSPLANT
     Dosage: DOSE QUANTITY: 1; FREQUENCY: AFTER MEALS
     Route: 048
  5. CORTICORTEN [Concomitant]
     Indication: RENAL TRANSPLANT
     Dosage: DOSE QUANTITY: 1
     Route: 048
  6. ENALAPRIL [Concomitant]
     Dosage: DOSE QUANTITY: 1
     Route: 048
  7. VALTRIAN [Concomitant]
     Dosage: DOSE QUANTITY: 1
     Route: 048
  8. UNKNOWN DRUG [Concomitant]
     Dosage: DOSE QUANTITY: 1
     Route: 048
  9. SIMVASTATIN [Concomitant]
     Dosage: DOSE QUANTITY: 1
     Route: 048

REACTIONS (5)
  - BLOOD GLUCOSE FLUCTUATION [None]
  - HYPOPROTEINAEMIA [None]
  - PRURITUS [None]
  - RENAL CYST [None]
  - WEIGHT DECREASED [None]
